FAERS Safety Report 15367387 (Version 1)
Quarter: 2018Q3

REPORT INFORMATION
  Report Type: Spontaneous
  Country: US (occurrence: US)
  Receive Date: 20180904
  Receipt Date: 20180904
  Transmission Date: 20181010
  Serious: Yes (Hospitalization)
  Sender: FDA-Public Use
  Company Number: None

PATIENT
  Sex: Female

DRUGS (20)
  1. DEXAMETHASON [Concomitant]
     Active Substance: DEXAMETHASONE
  2. HALOPERIDOL. [Concomitant]
     Active Substance: HALOPERIDOL
  3. PROTONIX [Concomitant]
     Active Substance: PANTOPRAZOLE SODIUM
  4. ZOFRAN [Concomitant]
     Active Substance: ONDANSETRON HYDROCHLORIDE
  5. GLEOSTINE [Suspect]
     Active Substance: LOMUSTINE
     Indication: BRAIN NEOPLASM MALIGNANT
     Dosage: ?          OTHER FREQUENCY:ONCE EVERY 6 WEEKS;?
     Route: 048
     Dates: start: 20180609
  6. ADDERALL [Concomitant]
     Active Substance: AMPHETAMINE ASPARTATE\AMPHETAMINE SULFATE\DEXTROAMPHETAMINE SACCHARATE\DEXTROAMPHETAMINE SULFATE
  7. BUTAL/APAP [Concomitant]
  8. COZAAR [Concomitant]
     Active Substance: LOSARTAN POTASSIUM
  9. KEPPRA [Concomitant]
     Active Substance: LEVETIRACETAM
  10. LASIX [Concomitant]
     Active Substance: FUROSEMIDE
  11. LEVEMIR [Concomitant]
     Active Substance: INSULIN DETEMIR
  12. MORPHINE SUL [Concomitant]
     Active Substance: MORPHINE SULFATE
  13. RESTORIL [Concomitant]
     Active Substance: TEMAZEPAM
  14. HUMALOG KWK INJ [Concomitant]
  15. LOPRESSOR [Concomitant]
     Active Substance: METOPROLOL TARTRATE
  16. GLEOSTINE [Suspect]
     Active Substance: LOMUSTINE
     Indication: BRAIN NEOPLASM MALIGNANT
     Dosage: ?          OTHER FREQUENCY:ONCE EVERY 6 WEEKS;?
     Route: 048
     Dates: start: 20180609
  17. ATIVAN [Concomitant]
     Active Substance: LORAZEPAM
  18. ACYCLOVIR. [Concomitant]
     Active Substance: ACYCLOVIR
  19. CYCLOBENZAPR [Concomitant]
     Active Substance: CYCLOBENZAPRINE
  20. OXYCODONE [Concomitant]
     Active Substance: OXYCODONE

REACTIONS (1)
  - Hospitalisation [None]
